FAERS Safety Report 10974476 (Version 2)
Quarter: 2015Q3

REPORT INFORMATION
  Report Type: Report from Study
  Country: US (occurrence: US)
  Receive Date: 20150401
  Receipt Date: 20150819
  Transmission Date: 20151125
  Serious: Yes (Hospitalization)
  Sender: FDA-Public Use
  Company Number: US-JNJFOC-20150400276

PATIENT
  Age: 55 Year
  Sex: Male
  Weight: 66.8 kg

DRUGS (18)
  1. SOFOSBUVIR [Suspect]
     Active Substance: SOFOSBUVIR
     Indication: HEPATITIS C
     Route: 048
     Dates: end: 20150228
  2. POTASSIUM [Concomitant]
     Active Substance: POTASSIUM
  3. SOTALOL. [Concomitant]
     Active Substance: SOTALOL
  4. METHOCARBAMOL. [Concomitant]
     Active Substance: METHOCARBAMOL
  5. GABAPENTINE [Concomitant]
     Active Substance: GABAPENTIN
  6. ALDACTONE [Concomitant]
     Active Substance: SPIRONOLACTONE
  7. ASPIRIN. [Concomitant]
     Active Substance: ASPIRIN
  8. RIBAVIRIN. [Suspect]
     Active Substance: RIBAVIRIN
     Indication: HEPATITIS C
     Route: 065
  9. LISINOPRIL. [Concomitant]
     Active Substance: LISINOPRIL
  10. BACTRIM [Concomitant]
     Active Substance: SULFAMETHOXAZOLE\TRIMETHOPRIM
  11. BUMETANIDE. [Concomitant]
     Active Substance: BUMETANIDE
  12. COUMADIN [Concomitant]
     Active Substance: WARFARIN SODIUM
  13. FOLIC ACID. [Concomitant]
     Active Substance: FOLIC ACID
  14. FUROSEMIDE. [Concomitant]
     Active Substance: FUROSEMIDE
  15. LACTULOSE. [Concomitant]
     Active Substance: LACTULOSE
  16. SIMEPREVIR [Suspect]
     Active Substance: SIMEPREVIR
     Indication: HEPATITIS C
     Route: 048
     Dates: end: 20150228
  17. BENZONATATE. [Concomitant]
     Active Substance: BENZONATATE
  18. FERROUS SULFATE [Concomitant]
     Active Substance: FERROUS SULFATE\FERROUS SULFATE, DRIED

REACTIONS (1)
  - Anaemia [Unknown]

NARRATIVE: CASE EVENT DATE: 20141125
